FAERS Safety Report 21044860 (Version 2)
Quarter: 2022Q3

REPORT INFORMATION
  Report Type: Report from Study
  Country: FR (occurrence: FR)
  Receive Date: 20220705
  Receipt Date: 20220824
  Transmission Date: 20221026
  Serious: Yes (Hospitalization)
  Sender: FDA-Public Use
  Company Number: FR-TAKEDA-2022TUS044594

PATIENT
  Age: 6 Year
  Sex: Female

DRUGS (33)
  1. TEDUGLUTIDE [Suspect]
     Active Substance: TEDUGLUTIDE
     Indication: Short-bowel syndrome
     Dosage: 0.9 MILLIGRAM, QD
     Route: 042
     Dates: start: 20211118
  2. TEDUGLUTIDE [Suspect]
     Active Substance: TEDUGLUTIDE
     Indication: Short-bowel syndrome
     Dosage: 0.9 MILLIGRAM, QD
     Route: 042
     Dates: start: 20211118
  3. TEDUGLUTIDE [Suspect]
     Active Substance: TEDUGLUTIDE
     Indication: Short-bowel syndrome
     Dosage: 0.9 MILLIGRAM, QD
     Route: 042
     Dates: start: 20211118
  4. TEDUGLUTIDE [Suspect]
     Active Substance: TEDUGLUTIDE
     Indication: Short-bowel syndrome
     Dosage: 0.9 MILLIGRAM, QD
     Route: 042
     Dates: start: 20211118
  5. AMIKACIN [Concomitant]
     Active Substance: AMIKACIN
     Indication: Pyrexia
     Dosage: 20 MILLIGRAM/KILOGRAM, QD
     Route: 042
     Dates: start: 20220628, end: 20220701
  6. AMIKACIN [Concomitant]
     Active Substance: AMIKACIN
     Indication: Infection
     Dosage: 260 MILLIGRAM
     Route: 042
     Dates: start: 20200105, end: 20200106
  7. AMIKACIN [Concomitant]
     Active Substance: AMIKACIN
     Indication: Parainfluenzae virus infection
     Dosage: 20 MILLIGRAM/KILOGRAM
     Route: 042
     Dates: start: 20200127, end: 20200129
  8. AMIKACIN [Concomitant]
     Active Substance: AMIKACIN
     Dosage: 20 MILLIGRAM/KILOGRAM, QD
     Route: 042
     Dates: start: 20220712, end: 20220716
  9. VANCOMYCIN [Concomitant]
     Active Substance: VANCOMYCIN
     Indication: Pyrexia
     Dosage: 15 MILLIGRAM/KILOGRAM, QD
     Route: 042
     Dates: start: 20220628, end: 20220701
  10. VANCOMYCIN [Concomitant]
     Active Substance: VANCOMYCIN
     Indication: Infection
     Dosage: 20 MILLIGRAM/KILOGRAM
     Route: 042
     Dates: start: 20190713, end: 20190715
  11. VANCOMYCIN [Concomitant]
     Active Substance: VANCOMYCIN
     Indication: Antibiotic therapy
     Dosage: 200 MILLIGRAM
     Route: 042
     Dates: start: 20200105, end: 20200108
  12. VANCOMYCIN [Concomitant]
     Active Substance: VANCOMYCIN
     Indication: Parainfluenzae virus infection
     Dosage: 15 MILLIGRAM/KILOGRAM
     Route: 042
     Dates: start: 20200127, end: 20200129
  13. VANCOMYCIN [Concomitant]
     Active Substance: VANCOMYCIN
     Dosage: 15 MILLIGRAM/KILOGRAM, QD
     Route: 042
     Dates: start: 20210209, end: 20210212
  14. VANCOMYCIN [Concomitant]
     Active Substance: VANCOMYCIN
     Dosage: 60 MILLIGRAM/KILOGRAM, QD
     Route: 042
     Dates: start: 20220712, end: 20220716
  15. URSODIOL [Concomitant]
     Active Substance: URSODIOL
     Indication: Cholestasis
     Dosage: 4 MILLILITER, BID
     Route: 048
     Dates: start: 20220611
  16. URSODIOL [Concomitant]
     Active Substance: URSODIOL
     Dosage: 4.5 MILLILITER, BID
     Route: 048
     Dates: start: 20211119, end: 20220610
  17. URSODIOL [Concomitant]
     Active Substance: URSODIOL
     Dosage: 4.8 MILLILITER, QD
     Route: 048
     Dates: start: 20170504
  18. URSODIOL [Concomitant]
     Active Substance: URSODIOL
     Dosage: 3.2 MILLILITER, BID
     Route: 048
     Dates: start: 20190524
  19. URSODIOL [Concomitant]
     Active Substance: URSODIOL
     Dosage: 4.2 MILLILITER, BID
     Route: 048
     Dates: start: 20210501, end: 20211118
  20. QUESTRAN [Concomitant]
     Active Substance: CHOLESTYRAMINE
     Indication: Ileectomy
     Dosage: 8 GRAM, QD
     Route: 048
  21. QUESTRAN [Concomitant]
     Active Substance: CHOLESTYRAMINE
     Dosage: 4 MILLIGRAM
     Route: 048
     Dates: start: 20190524
  22. SMECTA [Concomitant]
     Active Substance: MONTMORILLONITE
     Indication: Diarrhoea
     Dosage: 6 GRAM, QD
     Route: 048
     Dates: start: 20160615
  23. UVESTEROL VITAMINE A D E C [Concomitant]
     Indication: Vitamin supplementation
     Dosage: 1 DOSAGE FORM, QD
     Route: 048
     Dates: start: 20170918
  24. UVESTEROL VITAMINE A D E C [Concomitant]
     Dosage: 1 DOSAGE FORM, QD
     Route: 048
     Dates: start: 20190524, end: 20190823
  25. UVESTEROL VITAMINE A D E C [Concomitant]
     Dosage: 2 DOSAGE FORM, QD
     Route: 048
     Dates: start: 20190824, end: 20210430
  26. UVESTEROL VITAMINE A D E C [Concomitant]
     Dosage: 3 DOSAGE FORM, QD
     Route: 048
     Dates: start: 20210430
  27. FOLIC ACID [Concomitant]
     Active Substance: FOLIC ACID
     Indication: Folate deficiency
     Dosage: 2.5 MILLIGRAM, QD
     Route: 048
  28. SEPTEAL [Concomitant]
     Dosage: 4 INTERNATIONAL UNIT
     Route: 061
     Dates: start: 20190524
  29. BENZALKONIUM CHLORIDE\BENZYL ALCOHOL\CHLORHEXIDINE [Concomitant]
     Active Substance: BENZALKONIUM CHLORIDE\BENZYL ALCOHOL\CHLORHEXIDINE
     Dosage: 2 INTERNATIONAL UNIT
     Route: 061
     Dates: start: 20190524
  30. ACETAMINOPHEN [Concomitant]
     Active Substance: ACETAMINOPHEN
     Indication: Gait disturbance
     Dosage: 1 INTERNATIONAL UNIT
     Route: 048
     Dates: start: 20190524
  31. AMIKACIN SULFATE [Concomitant]
     Active Substance: AMIKACIN SULFATE
     Indication: Infection
     Dosage: 15 MILLIGRAM/KILOGRAM
     Route: 042
     Dates: start: 20190713, end: 20190715
  32. AMIKACIN SULFATE [Concomitant]
     Active Substance: AMIKACIN SULFATE
     Dosage: 20 MILLIGRAM/KILOGRAM, QD
     Route: 042
     Dates: start: 20210209, end: 20210209
  33. TAMIFLU [Concomitant]
     Active Substance: OSELTAMIVIR PHOSPHATE
     Indication: Influenza
     Dosage: 30 MILLIGRAM, QD
     Route: 048
     Dates: start: 20200106, end: 20200108

REACTIONS (1)
  - Pyrexia [Recovered/Resolved]

NARRATIVE: CASE EVENT DATE: 20220628
